FAERS Safety Report 7373995-4 (Version None)
Quarter: 2011Q1

REPORT INFORMATION
  Report Type: 
  Country: None (occurrence: None)
  Receive Date: 20110325
  Receipt Date: 20110321
  Transmission Date: 20110831
  Serious: No
  Sender: FDA-Public Use
  Company Number: US-PFIZER INC-2011062488

PATIENT
  Sex: Male

DRUGS (3)
  1. CHANTIX [Suspect]
  2. PREGABALIN [Concomitant]
  3. OXYCODONE [Concomitant]

REACTIONS (1)
  - ABDOMINAL PAIN UPPER [None]
